FAERS Safety Report 16662505 (Version 1)
Quarter: 2019Q3

REPORT INFORMATION
  Report Type: Spontaneous
  Country: HK (occurrence: HK)
  Receive Date: 20190802
  Receipt Date: 20190802
  Transmission Date: 20191004
  Serious: No
  Sender: FDA-Public Use
  Company Number: HK-EXELIXIS-CABO-18017581

PATIENT
  Age: 63 Year
  Sex: Male

DRUGS (1)
  1. CABOMETYX [Suspect]
     Active Substance: CABOZANTINIB S-MALATE
     Indication: RENAL CELL CARCINOMA
     Dosage: UNK

REACTIONS (2)
  - Renal function test abnormal [Unknown]
  - Skin reaction [Unknown]
